FAERS Safety Report 9731483 (Version 2)
Quarter: 2013Q4

REPORT INFORMATION
  Report Type: Report from Study
  Country: AU (occurrence: AU)
  Receive Date: 20131205
  Receipt Date: 20131220
  Transmission Date: 20140711
  Serious: No
  Sender: FDA-Public Use
  Company Number: AU-ROCHE-1309019

PATIENT
  Age: 38 Year
  Sex: Female
  Weight: 109.4 kg

DRUGS (3)
  1. TRASTUZUMAB EMTANSINE [Suspect]
     Indication: BREAST CANCER METASTATIC
     Dosage: MOST RECENT DOSE PRIOR TO SAE: 30/SEP/2013. PERMANENTLY DISCONTINUED
     Route: 042
     Dates: start: 20130415, end: 20131021
  2. PROVERA [Concomitant]
     Route: 065
     Dates: start: 20131014, end: 20131114
  3. SOMAC (AUSTRALIA) [Concomitant]
     Route: 065
     Dates: start: 20131015

REACTIONS (1)
  - Hepatic enzyme increased [Recovered/Resolved]
